FAERS Safety Report 8447492-9 (Version None)
Quarter: 2012Q2

REPORT INFORMATION
  Report Type: 
  Country: None (occurrence: None)
  Receive Date: 20120619
  Receipt Date: 20120615
  Transmission Date: 20120825
  Serious: Yes (Death)
  Sender: FDA-Public Use
  Company Number: PHHY2012BR030445

PATIENT
  Sex: Male

DRUGS (1)
  1. DIOVAN [Suspect]
     Indication: HYPERTENSION
     Dosage: 1 DF, DAILY
     Route: 048

REACTIONS (5)
  - METASTASES TO KIDNEY [None]
  - PROSTATE CANCER [None]
  - METASTASES TO LIVER [None]
  - METASTASES TO BONE [None]
  - NEOPLASM MALIGNANT [None]
